FAERS Safety Report 10512444 (Version 2)
Quarter: 2014Q4

REPORT INFORMATION
  Report Type: Spontaneous
  Country: US (occurrence: US)
  Receive Date: 20141011
  Receipt Date: 20141011
  Transmission Date: 20150528
  Serious: Yes (Hospitalization, Other)
  Sender: FDA-Public Use
  Company Number: US-SUN PHARMACEUTICAL INDUSTRIES LTD-2014SUN02176

PATIENT

DRUGS (1)
  1. PHENYTOIN SODIUM ER CAPS 100MG [Suspect]
     Active Substance: PHENYTOIN SODIUM
     Indication: EPILEPSY
     Dosage: 2 CAPSULES, TWICE DAILY
     Route: 048
     Dates: start: 20140804, end: 20140908

REACTIONS (8)
  - Gait disturbance [Recovering/Resolving]
  - Product substitution issue [None]
  - Balance disorder [Recovering/Resolving]
  - Product quality issue [None]
  - Pruritus [Recovering/Resolving]
  - Anticonvulsant drug level above therapeutic [None]
  - Drug level increased [Unknown]
  - Headache [Recovering/Resolving]

NARRATIVE: CASE EVENT DATE: 201409
